FAERS Safety Report 12350322 (Version 1)
Quarter: 2016Q2

REPORT INFORMATION
  Report Type: Spontaneous
  Country: US (occurrence: US)
  Receive Date: 20160510
  Receipt Date: 20160510
  Transmission Date: 20160815
  Serious: No
  Sender: FDA-Public Use
  Company Number: US-GLAXOSMITHKLINE-US2016058154

PATIENT
  Sex: Male

DRUGS (3)
  1. VYTORIN [Concomitant]
     Active Substance: EZETIMIBE\SIMVASTATIN
  2. ENABLEX [Concomitant]
     Active Substance: DARIFENACIN HYDROBROMIDE
  3. CARVEDILOL. [Suspect]
     Active Substance: CARVEDILOL
     Indication: ARRHYTHMIA
     Route: 048

REACTIONS (2)
  - Drug ineffective [Recovered/Resolved]
  - Product substitution issue [Recovered/Resolved]
